FAERS Safety Report 10057168 (Version 1)
Quarter: 2014Q2

REPORT INFORMATION
  Report Type: Spontaneous
  Country: FR (occurrence: FR)
  Receive Date: 20140403
  Receipt Date: 20140403
  Transmission Date: 20141212
  Serious: Yes (Other)
  Sender: FDA-Public Use
  Company Number: FR-TEVA-472848USA

PATIENT
  Age: 50 Year
  Sex: Female

DRUGS (9)
  1. LEVACT [Suspect]
     Dosage: CYCLIC
     Route: 042
     Dates: start: 20131003
  2. LEVACT [Suspect]
     Dosage: CYCLIC
     Route: 042
     Dates: start: 20140123
  3. LEVACT [Suspect]
     Dosage: CYCLIC
     Route: 042
     Dates: start: 20140124
  4. MABTHERA [Suspect]
     Route: 042
     Dates: start: 20131003
  5. MABTHERA [Suspect]
     Route: 042
     Dates: start: 20140123
  6. ACUPAN [Suspect]
     Indication: PAIN
     Route: 048
     Dates: start: 20140131, end: 20140203
  7. SOLUPRED [Concomitant]
     Route: 065
     Dates: start: 20140123, end: 20140129
  8. PRIMPERAN [Concomitant]
     Route: 065
     Dates: start: 20140123, end: 20140129
  9. INEXIUM [Concomitant]
     Route: 065
     Dates: start: 20140123, end: 20140129

REACTIONS (4)
  - Eosinophilia [Recovered/Resolved]
  - Face oedema [Recovered/Resolved]
  - Pyrexia [Recovered/Resolved]
  - Rash vesicular [Recovered/Resolved]
